FAERS Safety Report 9295055 (Version 2)
Quarter: 2013Q2

REPORT INFORMATION
  Report Type: Spontaneous
  Country: US (occurrence: None)
  Receive Date: 20121227
  Receipt Date: 20130507
  Transmission Date: 20140414
  Serious: No
  Sender: FDA-Public Use
  Company Number: PHEH2012US020440

PATIENT
  Sex: Male

DRUGS (3)
  1. AFINITOR [Suspect]
     Indication: TUBEROUS SCLEROSIS
     Route: 048
     Dates: start: 20120928, end: 20121113
  2. KEPPRA (LEVETIRACETAM) [Concomitant]
  3. KLONOPIN (CLONAZEPAM) (TABLETS) [Concomitant]

REACTIONS (2)
  - Diarrhoea [None]
  - Gingival infection [None]
